FAERS Safety Report 14720693 (Version 1)
Quarter: 2018Q2

REPORT INFORMATION
  Report Type: Spontaneous
  Country: IT (occurrence: IT)
  Receive Date: 20180405
  Receipt Date: 20180405
  Transmission Date: 20180711
  Serious: Yes (Other)
  Sender: FDA-Public Use
  Company Number: IT-AMGEN-ITASP2018042330

PATIENT
  Age: 36 Year
  Sex: Male

DRUGS (5)
  1. PANCRELIPASE. [Concomitant]
     Active Substance: PANCRELIPASE
     Dosage: 60000 IU, UNK
  2. ESOMEPRAZOL [Concomitant]
     Active Substance: ESOMEPRAZOLE
     Dosage: 40 MG, UNK
  3. SEVELAMER [Concomitant]
     Active Substance: SEVELAMER
     Dosage: 4800 MG, UNK
  4. CARDIOASPIRIN [Concomitant]
     Active Substance: ASPIRIN
     Dosage: 100 MG, UNK
  5. CINACALCET HCL [Suspect]
     Active Substance: CINACALCET HYDROCHLORIDE
     Indication: HYPERPARATHYROIDISM PRIMARY
     Dosage: 30 MG, QD
     Route: 065

REACTIONS (3)
  - Off label use [Unknown]
  - Type 2 diabetes mellitus [Unknown]
  - Pancreatic neuroendocrine tumour metastatic [Recovered/Resolved]
